FAERS Safety Report 19193651 (Version 1)
Quarter: 2021Q2

REPORT INFORMATION
  Report Type: Other
  Country: ES (occurrence: ES)
  Receive Date: 20210429
  Receipt Date: 20210429
  Transmission Date: 20210717
  Serious: Yes (Hospitalization)
  Sender: FDA-Public Use
  Company Number: ES-CADILA HEALTHCARE LIMITED-ES-ZYDUS-065060

PATIENT

DRUGS (4)
  1. TRANXILIUM [Concomitant]
     Active Substance: CLORAZEPATE DIPOTASSIUM
     Indication: PRODUCT USED FOR UNKNOWN INDICATION
     Dosage: UNK, TID (1 DOSAGE FORM 2 TIMES AND 2 DOSAGE FORM 1TIME DAILY)
     Route: 048
     Dates: start: 20210313, end: 20210326
  2. QUETIAPINE. [Interacting]
     Active Substance: QUETIAPINE
     Indication: SCHIZOPHRENIA
     Dosage: 1 DOSAGE FORM, QD
     Route: 048
     Dates: start: 20210313
  3. PALIPERIDONA [Interacting]
     Active Substance: PALIPERIDONE
     Indication: SCHIZOPHRENIA
     Dosage: 1 DOSAGE FORM, QD
     Route: 048
     Dates: start: 20210313, end: 20210326
  4. SERTRALINE [Suspect]
     Active Substance: SERTRALINE HYDROCHLORIDE
     Indication: PRODUCT USED FOR UNKNOWN INDICATION
     Dosage: 1 DOSAGE FORM, QD
     Route: 048
     Dates: start: 20210313

REACTIONS (1)
  - Pulmonary embolism [Recovered/Resolved]

NARRATIVE: CASE EVENT DATE: 20210326
